FAERS Safety Report 18160910 (Version 1)
Quarter: 2020Q3

REPORT INFORMATION
  Report Type: Spontaneous
  Country: US (occurrence: US)
  Receive Date: 20200818
  Receipt Date: 20200818
  Transmission Date: 20201103
  Serious: No
  Sender: FDA-Public Use
  Company Number: US-COLGATE PALMOLIVE COMPANY-20191203078

PATIENT

DRUGS (1)
  1. COLGATE TOTAL ADVANCED DEEP CLEAN [Suspect]
     Active Substance: SODIUM FLUORIDE\TRICLOSAN
     Dosage: UNKNOWN DOSE
     Route: 048
     Dates: start: 201912, end: 201912

REACTIONS (4)
  - Gingival swelling [Recovered/Resolved]
  - Gingival discomfort [Recovered/Resolved]
  - Lip swelling [Recovered/Resolved]
  - Noninfective gingivitis [Recovered/Resolved]

NARRATIVE: CASE EVENT DATE: 201912
